FAERS Safety Report 16969451 (Version 1)
Quarter: 2019Q4

REPORT INFORMATION
  Report Type: Spontaneous
  Country: CN (occurrence: CN)
  Receive Date: 20191029
  Receipt Date: 20191029
  Transmission Date: 20200122
  Serious: Yes (Hospitalization, Other)
  Sender: FDA-Public Use
  Company Number: CN-PFIZER INC-2019459922

PATIENT
  Age: 6 Decade
  Sex: Female

DRUGS (1)
  1. XELJANZ [Suspect]
     Active Substance: TOFACITINIB CITRATE
     Dosage: 1 TABLET
     Route: 048
     Dates: start: 20191021

REACTIONS (10)
  - Pyrexia [Unknown]
  - Pneumonia [Unknown]
  - Cough [Unknown]
  - Headache [Unknown]
  - Arthralgia [Unknown]
  - Infection [Unknown]
  - Chills [Unknown]
  - Drug hypersensitivity [Unknown]
  - White blood cell count increased [Unknown]
  - Dizziness [Unknown]

NARRATIVE: CASE EVENT DATE: 20191021
